FAERS Safety Report 4505150-7 (Version None)
Quarter: 2004Q4

REPORT INFORMATION
  Report Type: 
  Country: None (occurrence: None)
  Receive Date: 20041117
  Receipt Date: 20041117
  Transmission Date: 20050328
  Serious: Yes (Hospitalization)
  Sender: FDA-Public Use
  Company Number: None

PATIENT
  Age: 56 Year
  Sex: Female

DRUGS (8)
  1. NEFAZODONE [Suspect]
     Indication: AFFECTIVE DISORDER
     Dosage: 200 MG BID
  2. LISINOPRIL AND HYDROCHLOROTHIAZIDE [Concomitant]
  3. METHOCARBAMOL [Concomitant]
  4. VITAMIN E [Concomitant]
  5. ZOCOR [Concomitant]
  6. CLARITIN [Concomitant]
  7. COLESTIPOL [Concomitant]
  8. OMEPRAZOLE [Concomitant]

REACTIONS (1)
  - ORTHOSTATIC HYPOTENSION [None]
